FAERS Safety Report 14122309 (Version 2)
Quarter: 2018Q1

REPORT INFORMATION
  Report Type: Spontaneous
  Country: US (occurrence: US)
  Receive Date: 20171024
  Receipt Date: 20180123
  Transmission Date: 20180508
  Serious: No
  Sender: FDA-Public Use
  Company Number: US-IMPAX LABORATORIES, INC-2017-IPXL-02664

PATIENT
  Age: 85 Year
  Sex: Female
  Weight: 50 kg

DRUGS (3)
  1. GABAPENTIN. [Concomitant]
     Active Substance: GABAPENTIN
     Indication: ANXIETY
     Dosage: 100 MG, UNK
     Route: 065
  2. RYTARY [Suspect]
     Active Substance: CARBIDOPA\LEVODOPA
     Indication: PARKINSON^S DISEASE
     Dosage: 2DF 48.75/195MG AT 6:00, 1DF 48.75/195MG + 1DF 23.75/95MG AT 10:00 AND 14:00, UNKNOWN DOSE AT 18:00
     Route: 048
     Dates: start: 201708
  3. ZOLOFT [Concomitant]
     Active Substance: SERTRALINE HYDROCHLORIDE
     Indication: ANXIETY
     Dosage: 100 MG, UNK
     Route: 065

REACTIONS (5)
  - Rash pruritic [Not Recovered/Not Resolved]
  - Skin discolouration [Unknown]
  - Fall [Unknown]
  - Tremor [Not Recovered/Not Resolved]
  - Swelling face [Unknown]

NARRATIVE: CASE EVENT DATE: 2017
